FAERS Safety Report 6506052-7 (Version None)
Quarter: 2009Q4

REPORT INFORMATION
  Report Type: 
  Country: None (occurrence: None)
  Receive Date: 20091218
  Receipt Date: 20091208
  Transmission Date: 20100525
  Serious: Yes (Hospitalization)
  Sender: FDA-Public Use
  Company Number: AU-JNJFOC-20090602149

PATIENT
  Sex: Female
  Weight: 106 kg

DRUGS (7)
  1. HALOPERIDOL [Suspect]
     Indication: PSYCHOTIC DISORDER
     Route: 048
  2. HALOPERIDOL [Suspect]
     Dosage: 7.5 TO 12.5 MG DAILY
     Route: 048
  3. EFFEXOR [Interacting]
     Indication: ANTIDEPRESSANT THERAPY
     Route: 048
  4. ZOLOFT [Interacting]
     Indication: ANTIDEPRESSANT THERAPY
  5. QUETIAPINE FUMARATE [Interacting]
     Indication: PROPHYLAXIS
     Route: 048
  6. FOLIC ACID [Concomitant]
     Indication: PROPHYLAXIS
     Route: 048
  7. ELEVIT [Concomitant]
     Indication: VITAMIN SUPPLEMENTATION

REACTIONS (7)
  - DRUG EXPOSURE DURING PREGNANCY [None]
  - DRUG INTERACTION [None]
  - HYPEREMESIS GRAVIDARUM [None]
  - POSTPARTUM DEPRESSION [None]
  - PSYCHOTIC DISORDER [None]
  - URINARY TRACT INFECTION [None]
  - WEIGHT DECREASED [None]
